FAERS Safety Report 25996232 (Version 1)
Quarter: 2025Q4

REPORT INFORMATION
  Report Type: Spontaneous
  Country: JP (occurrence: JP)
  Receive Date: 20251104
  Receipt Date: 20251104
  Transmission Date: 20260118
  Serious: Yes (Death, Hospitalization, Other)
  Sender: ELI LILLY AND COMPANY
  Company Number: JP-ELI_LILLY_AND_COMPANY-JP202510000030

PATIENT
  Age: 72 Year
  Sex: Female
  Weight: 58 kg

DRUGS (7)
  1. VERZENIO [Suspect]
     Active Substance: ABEMACICLIB
     Indication: Breast cancer recurrent
     Dosage: 100 MG, BID
     Route: 048
     Dates: start: 20240913, end: 20250801
  2. SOLU-MEDROL [Suspect]
     Active Substance: METHYLPREDNISOLONE SODIUM SUCCINATE
     Indication: Interstitial lung disease
     Dosage: 1000 MG, DAILY
     Route: 065
     Dates: start: 20250805, end: 20250807
  3. SOLU-MEDROL [Suspect]
     Active Substance: METHYLPREDNISOLONE SODIUM SUCCINATE
     Dosage: 1000 MG, DAILY
     Route: 065
     Dates: start: 20250814, end: 20250816
  4. PREDONINE [Suspect]
     Active Substance: PREDNISOLONE
     Indication: Interstitial lung disease
     Dosage: 30 MG, DAILY
     Route: 065
     Dates: start: 20250808, end: 20250813
  5. PREDONINE [Suspect]
     Active Substance: PREDNISOLONE
     Dosage: 20 MG
     Route: 065
     Dates: start: 20250814
  6. PREDONINE [Suspect]
     Active Substance: PREDNISOLONE
     Dosage: 30 MG, DAILY
     Route: 065
     Dates: start: 20250817
  7. EXEMESTANE [Concomitant]
     Active Substance: EXEMESTANE
     Indication: Breast cancer recurrent
     Dosage: 25 MG, DAILY
     Dates: start: 20230428, end: 20250801

REACTIONS (2)
  - Interstitial lung disease [Fatal]
  - Pulmonary bulla [Unknown]

NARRATIVE: CASE EVENT DATE: 20250805
